FAERS Safety Report 9996080 (Version 1)
Quarter: 2014Q1

REPORT INFORMATION
  Report Type: Report from Study
  Country: CA (occurrence: CA)
  Receive Date: 20140311
  Receipt Date: 20140311
  Transmission Date: 20141002
  Serious: Yes (Hospitalization)
  Sender: FDA-Public Use
  Company Number: CA-GLAXOSMITHKLINE-A1063121B

PATIENT
  Age: 74 Year
  Sex: Female
  Weight: 56.2 kg

DRUGS (15)
  1. OFATUMUMAB [Suspect]
     Indication: CHRONIC LYMPHOCYTIC LEUKAEMIA
     Dosage: 300MG WEEKLY
     Route: 042
     Dates: start: 20140108
  2. INVESTIGATIONAL STUDY DRUG [Suspect]
     Indication: CHRONIC LYMPHOCYTIC LEUKAEMIA
     Dosage: 150MG TWICE PER DAY
     Route: 048
     Dates: start: 20140108
  3. SOLUMEDROL [Suspect]
     Indication: PRODUCT USED FOR UNKNOWN INDICATION
  4. BENADRYL [Suspect]
     Indication: PRODUCT USED FOR UNKNOWN INDICATION
  5. ALLOPURINOL [Concomitant]
  6. LATANOPROST [Concomitant]
  7. BRIMONIDINE TARTRATE [Concomitant]
  8. CLOPIDOGREL [Concomitant]
  9. ROSUVASTATIN [Concomitant]
  10. ASA [Concomitant]
  11. ATENOLOL [Concomitant]
  12. OMEPRAZOLE [Concomitant]
  13. VALSARTAN [Concomitant]
  14. NITRO-DUR [Concomitant]
  15. VALACYCLOVIR HYDROCHLORIDE [Concomitant]

REACTIONS (3)
  - Vertigo [Not Recovered/Not Resolved]
  - Nausea [Recovered/Resolved]
  - Vomiting [Recovered/Resolved]
